FAERS Safety Report 6846983-1 (Version None)
Quarter: 2010Q3

REPORT INFORMATION
  Report Type: 
  Country: None (occurrence: None)
  Receive Date: 20100713
  Receipt Date: 20100705
  Transmission Date: 20110219
  Serious: Yes (Death)
  Sender: FDA-Public Use
  Company Number: B0664723A

PATIENT
  Sex: Male

DRUGS (4)
  1. DOCETAXEL [Suspect]
     Indication: PROSTATE CANCER
     Dosage: 70 MG/M2 /PER DAY / INTRAVENOUS INFUS
     Route: 042
  2. HYDROCORTISONE [Suspect]
     Indication: PROSTATE CANCER
  3. ESTRAMUSTINE NA PHOSPHATE (FORMULATION UNKNOWN) (ESTRAMUSTINE NA PHOSP [Suspect]
     Indication: PROSTATE CANCER
     Dosage: 560 MG / PER DAY
  4. DEXAMETHASONE [Suspect]
     Indication: PROSTATE CANCER
     Dosage: PER DAY /

REACTIONS (2)
  - DRUG TOXICITY [None]
  - INTERSTITIAL LUNG DISEASE [None]
